FAERS Safety Report 9636037 (Version 2)
Quarter: 2013Q4

REPORT INFORMATION
  Report Type: Report from Study
  Country: TH (occurrence: TH)
  Receive Date: 20131021
  Receipt Date: 20131021
  Transmission Date: 20140711
  Serious: Yes (Other)
  Sender: FDA-Public Use
  Company Number: PHHY2012TH129216

PATIENT
  Age: 56 Year
  Sex: Female

DRUGS (2)
  1. ZOMETA [Suspect]
     Indication: METASTASES TO BONE
     Dosage: 4 MG PER TIME PER MONTH, EVERY 3 MONTHS
     Route: 041
  2. ZOMETA [Suspect]
     Dosage: UNK
     Dates: start: 20130404

REACTIONS (6)
  - Exostosis [Recovered/Resolved]
  - Gingivitis [Unknown]
  - Gingival abscess [Recovered/Resolved]
  - Gingival swelling [Recovered/Resolved]
  - Toothache [Unknown]
  - Dysphonia [Unknown]
